FAERS Safety Report 4492810-X (Version None)
Quarter: 2004Q4

REPORT INFORMATION
  Report Type: 
  Country: None (occurrence: None)
  Receive Date: 20041102
  Receipt Date: 20041014
  Transmission Date: 20050328
  Serious: Yes (Hospitalization)
  Sender: FDA-Public Use
  Company Number: 29628

PATIENT
  Sex: Female

DRUGS (1)
  1. CILOXAN [Suspect]
     Dosage: OPHT
     Route: 047

REACTIONS (2)
  - LIVER FUNCTION TEST ABNORMAL [None]
  - RASH GENERALISED [None]
